FAERS Safety Report 6049421-4 (Version None)
Quarter: 2009Q1

REPORT INFORMATION
  Report Type: 
  Country: None (occurrence: None)
  Receive Date: 20090121
  Receipt Date: 20080327
  Transmission Date: 20090719
  Serious: Yes (Other)
  Sender: FDA-Public Use
  Company Number: HQWYE832003SEP04

PATIENT
  Age: 45 Year
  Sex: Female
  Weight: 54.48 kg

DRUGS (3)
  1. PREMPRO [Suspect]
     Indication: HORMONE REPLACEMENT THERAPY
     Dosage: UNSPECIFIED, ORAL
     Route: 048
     Dates: start: 19960101, end: 20000101
  2. PREMARIN [Suspect]
     Dosage: DOSE UNSPECIFIED USED BRIEFLY, ORAL
     Route: 048
     Dates: start: 19970101
  3. PROVERA [Suspect]
     Dosage: INTERMITTENT USE DOSE UNSPECIFIED
     Dates: start: 19900101, end: 19950101

REACTIONS (1)
  - BREAST CANCER [None]
